FAERS Safety Report 21728446 (Version 1)
Quarter: 2022Q4

REPORT INFORMATION
  Report Type: Spontaneous
  Country: DE (occurrence: DE)
  Receive Date: 20221214
  Receipt Date: 20221214
  Transmission Date: 20230113
  Serious: Yes (Life-Threatening, Hospitalization)
  Sender: FDA-Public Use
  Company Number: DE-MYLANLABS-2022M1138690

PATIENT
  Age: 56 Year
  Sex: Female

DRUGS (7)
  1. EPINEPHRINE [Suspect]
     Active Substance: EPINEPHRINE
     Indication: Haemodynamic instability
     Dosage: 5.5 MICROGRAM/KILOGRAM, QMINUTE
     Route: 065
  2. NOREPINEPHRINE [Suspect]
     Active Substance: NOREPINEPHRINE
     Indication: Haemodynamic instability
     Dosage: 4.5 MICROGRAM/KILOGRAM, QMINUTE
     Route: 065
  3. HEPARIN [Suspect]
     Active Substance: HEPARIN SODIUM
     Indication: Anticoagulant therapy
     Dosage: UNK
     Route: 065
  4. FIBRINOGEN [Concomitant]
     Active Substance: FIBRINOGEN HUMAN
     Indication: Procoagulant therapy
     Dosage: UNK
     Route: 065
  5. PROTHROMBIN COMPLEX CONCENTRATE NOS [Concomitant]
     Active Substance: COAGULATION FACTOR IX HUMAN\COAGULATION FACTOR VII HUMAN\COAGULATION FACTOR X HUMAN\PROTHROMBIN
     Indication: Procoagulant therapy
     Dosage: UNK
     Route: 065
  6. MIDAZOLAM [Concomitant]
     Active Substance: MIDAZOLAM
     Indication: Sedative therapy
     Dosage: UNK
     Route: 065
  7. FENTANYL [Concomitant]
     Active Substance: FENTANYL
     Indication: Sedative therapy
     Dosage: UNK
     Route: 065

REACTIONS (1)
  - Drug ineffective [Unknown]
